FAERS Safety Report 5648574-7 (Version None)
Quarter: 2008Q1

REPORT INFORMATION
  Report Type: 
  Country: None (occurrence: None)
  Receive Date: 20080303
  Receipt Date: 20080303
  Transmission Date: 20080703
  Serious: Yes (Hospitalization, Other)
  Sender: FDA-Public Use
  Company Number: None

PATIENT
  Age: 28 Year
  Sex: Female
  Weight: 70.3075 kg

DRUGS (1)
  1. CHANTIX [Suspect]
     Indication: SMOKING CESSATION THERAPY
     Dosage: 1 PILL TWICE DAILY PO
     Route: 048
     Dates: start: 20070815, end: 20080104

REACTIONS (4)
  - ANXIETY [None]
  - DEPRESSION [None]
  - MOOD SWINGS [None]
  - PANIC ATTACK [None]
